FAERS Safety Report 5720656-0 (Version None)
Quarter: 2008Q2

REPORT INFORMATION
  Report Type: 
  Country: None (occurrence: None)
  Receive Date: 20080429
  Receipt Date: 20080417
  Transmission Date: 20081010
  Serious: Yes (Other)
  Sender: FDA-Public Use
  Company Number: MY-JNJFOC-20080404951

PATIENT
  Sex: Male
  Weight: 98 kg

DRUGS (7)
  1. REMICADE [Suspect]
     Dosage: 2 ON UNKNOWN DATES
     Route: 042
  2. REMICADE [Suspect]
     Route: 042
  3. REMICADE [Suspect]
     Route: 042
  4. REMICADE [Suspect]
     Route: 042
  5. REMICADE [Suspect]
     Route: 042
  6. REMICADE [Suspect]
     Route: 042
  7. REMICADE [Suspect]
     Indication: PSORIASIS
     Route: 042

REACTIONS (3)
  - DRUG INEFFECTIVE [None]
  - ERYTHRODERMIC PSORIASIS [None]
  - PSORIATIC ARTHROPATHY [None]
